FAERS Safety Report 17251575 (Version 1)
Quarter: 2019Q4

REPORT INFORMATION
  Report Type: Spontaneous
  Country: US (occurrence: US)
  Receive Date: 20191216
  Receipt Date: 20191216
  Transmission Date: 20200122
  Serious: No
  Sender: FDA-Public Use
  Company Number: None

PATIENT
  Sex: Female

DRUGS (1)
  1. VERZENIO [Suspect]
     Active Substance: ABEMACICLIB
     Indication: ILL-DEFINED DISORDER
     Route: 048
     Dates: start: 20190719

REACTIONS (6)
  - Back pain [None]
  - Abdominal distension [None]
  - Pain in extremity [None]
  - Diarrhoea [None]
  - Arthralgia [None]
  - Nausea [None]
